FAERS Safety Report 6805219-8 (Version None)
Quarter: 2010Q2

REPORT INFORMATION
  Report Type: 
  Country: None (occurrence: None)
  Receive Date: 20100628
  Receipt Date: 20071003
  Transmission Date: 20101027
  Serious: No
  Sender: FDA-Public Use
  Company Number: US-PFIZER INC-2007083519

PATIENT
  Sex: Male
  Weight: 102.1 kg

DRUGS (6)
  1. SUTENT [Suspect]
     Indication: RENAL CELL CARCINOMA
     Dates: start: 20070928
  2. CLOTRIMAZOLE [Concomitant]
  3. DOXAZOSIN MESILATE [Concomitant]
  4. IRON PREPARATIONS [Concomitant]
  5. MONTELUKAST SODIUM [Concomitant]
  6. MULTI-VITAMINS [Concomitant]

REACTIONS (1)
  - DYSGEUSIA [None]
